FAERS Safety Report 17822572 (Version 1)
Quarter: 2020Q2

REPORT INFORMATION
  Report Type: Spontaneous
  Country: CO (occurrence: CO)
  Receive Date: 20200526
  Receipt Date: 20200526
  Transmission Date: 20200714
  Serious: Yes (Other)
  Sender: FDA-Public Use
  Company Number: CO-SUN PHARMACEUTICAL INDUSTRIES LTD-2020RR-248285

PATIENT
  Age: 45 Year
  Sex: Male

DRUGS (2)
  1. ISOTRETINOIN. [Suspect]
     Active Substance: ISOTRETINOIN
     Indication: ROSACEA
     Dosage: ONE YEAR AFTER
     Route: 065
  2. ISOTRETINOIN. [Suspect]
     Active Substance: ISOTRETINOIN
     Indication: NEPHROLITHIASIS
     Dosage: 1 MILLIGRAM/KILOGRAM, DAILY, IN 2 DOSES
     Route: 065

REACTIONS (1)
  - Myositis [Recovering/Resolving]
